FAERS Safety Report 9917131 (Version 2)
Quarter: 2014Q1

REPORT INFORMATION
  Report Type: Spontaneous
  Country: US (occurrence: US)
  Receive Date: 20140221
  Receipt Date: 20140305
  Transmission Date: 20141002
  Serious: No
  Sender: FDA-Public Use
  Company Number: US-009507513-1402USA010631

PATIENT
  Age: 59 Year
  Sex: Female
  Weight: 72.56 kg

DRUGS (7)
  1. OXYTROL FOR WOMEN [Suspect]
     Indication: HYPERTONIC BLADDER
     Dosage: 1 DF, Q4D
     Route: 062
     Dates: start: 20140125, end: 20140206
  2. DIMETHYL SULFONE (+) GLUCOSAMINE [Concomitant]
     Indication: FIBROMYALGIA
     Dosage: UNK, UNKNOWN
  3. EFFEXOR XR [Concomitant]
     Indication: DEPRESSION
     Dosage: UNK, UNKNOWN
  4. EFFEXOR XR [Concomitant]
     Indication: ANXIETY
  5. PYRIDOXINE [Concomitant]
     Indication: CARPAL TUNNEL SYNDROME
     Dosage: UNK, UNKNOWN
  6. ASPIRIN [Concomitant]
     Indication: PRODUCT USED FOR UNKNOWN INDICATION
     Dosage: 1 DF, QD
  7. BIOTIN [Concomitant]
     Indication: ALOPECIA
     Dosage: UNK, UNKNOWN

REACTIONS (3)
  - Application site pruritus [Recovered/Resolved]
  - Application site erythema [Recovered/Resolved]
  - Drug ineffective [Unknown]
